FAERS Safety Report 6763195-0 (Version None)
Quarter: 2010Q2

REPORT INFORMATION
  Report Type: 
  Country: None (occurrence: None)
  Receive Date: 20100609
  Receipt Date: 20100505
  Transmission Date: 20101027
  Serious: Yes (Death, Hospitalization)
  Sender: FDA-Public Use
  Company Number: GB-JNJFOC-20100502761

PATIENT
  Sex: Male

DRUGS (9)
  1. IBUPROFEN [Suspect]
     Route: 048
  2. IBUPROFEN [Suspect]
     Indication: DRUG USE FOR UNKNOWN INDICATION
     Route: 048
  3. AMIAS [Suspect]
     Indication: DRUG USE FOR UNKNOWN INDICATION
  4. DALTEPARIN SODIUM [Suspect]
     Indication: DRUG USE FOR UNKNOWN INDICATION
     Route: 065
  5. ADALAT [Concomitant]
     Indication: DRUG USE FOR UNKNOWN INDICATION
     Route: 048
  6. SIMVASTATIN [Concomitant]
     Indication: DRUG USE FOR UNKNOWN INDICATION
     Route: 048
  7. PARACETAMOL [Concomitant]
     Indication: DRUG USE FOR UNKNOWN INDICATION
     Route: 048
  8. ERLOTINIB [Concomitant]
     Indication: DRUG USE FOR UNKNOWN INDICATION
  9. RADIOTHERAPY [Concomitant]
     Indication: DRUG USE FOR UNKNOWN INDICATION
     Dosage: 5 FRACTIONS COMPLETED

REACTIONS (1)
  - RENAL FAILURE [None]
